FAERS Safety Report 11236241 (Version 2)
Quarter: 2015Q3

REPORT INFORMATION
  Report Type: Report from Study
  Country: US (occurrence: US)
  Receive Date: 20150702
  Receipt Date: 20150730
  Transmission Date: 20151125
  Serious: Yes (Other)
  Sender: FDA-Public Use
  Company Number: US-GILEAD-2015-0160215

PATIENT
  Age: 68 Year
  Sex: Female

DRUGS (7)
  1. IDELALISIB [Suspect]
     Active Substance: IDELALISIB
     Indication: NON-HODGKIN^S LYMPHOMA
     Dosage: 150 MG, QD
     Route: 048
     Dates: start: 20150612, end: 20150620
  2. BENAZEPRIL [Concomitant]
     Active Substance: BENAZEPRIL HYDROCHLORIDE
  3. VIREAD [Suspect]
     Active Substance: TENOFOVIR DISOPROXIL FUMARATE
     Indication: NON-HODGKIN^S LYMPHOMA
     Route: 065
  4. ATIVAN [Concomitant]
     Active Substance: LORAZEPAM
  5. VITAMIN D [Concomitant]
     Active Substance: CHOLECALCIFEROL
  6. NEURONTIN [Concomitant]
     Active Substance: GABAPENTIN
  7. CITRACAL PLUS [Concomitant]
     Active Substance: CALCIUM\MAGNESIUM\VITAMIN D\ZINC

REACTIONS (8)
  - Metastases to central nervous system [Unknown]
  - Anxiety [Not Recovered/Not Resolved]
  - Confusional state [Not Recovered/Not Resolved]
  - Fatigue [Not Recovered/Not Resolved]
  - Cognitive disorder [Unknown]
  - Paranoia [Not Recovered/Not Resolved]
  - Amnesia [Not Recovered/Not Resolved]
  - Off label use [Unknown]

NARRATIVE: CASE EVENT DATE: 2015
